FAERS Safety Report 20394657 (Version 3)
Quarter: 2022Q1

REPORT INFORMATION
  Report Type: Report from Study
  Country: CA (occurrence: CA)
  Receive Date: 20220129
  Receipt Date: 20220226
  Transmission Date: 20220424
  Serious: Yes (Other)
  Sender: FDA-Public Use
  Company Number: CA-TEVA-2021-CA-1993334

PATIENT
  Age: 32 Year
  Sex: Female
  Weight: 84 kg

DRUGS (5)
  1. CINQAIR [Suspect]
     Active Substance: RESLIZUMAB
     Indication: Asthma
     Dosage: LAST INFUSION DATE: 23-NOV-2021?LAST INFUSION DATE: 21-DEC-2021?LAST INFUSION DATE: 19-JAN-2022
     Route: 042
     Dates: start: 20200212
  2. FASENRA [Concomitant]
     Active Substance: BENRALIZUMAB
     Route: 065
  3. Zenhale 200 [Concomitant]
     Dosage: 10 MICROGRAM DAILY; 2 PUFFS TWICE A DAY
     Route: 065
  4. BREO ELLIPTA [Concomitant]
     Active Substance: FLUTICASONE FUROATE\VILANTEROL TRIFENATATE
     Route: 065
  5. SPIRIVA RESPIMAT [Concomitant]
     Active Substance: TIOTROPIUM BROMIDE

REACTIONS (4)
  - Nephrolithiasis [Recovered/Resolved]
  - Weight increased [Unknown]
  - Incorrect dose administered [Unknown]
  - Weight decreased [Unknown]

NARRATIVE: CASE EVENT DATE: 20210101
